FAERS Safety Report 10156740 (Version 1)
Quarter: 2014Q2

REPORT INFORMATION
  Report Type: Spontaneous
  Country: CA (occurrence: None)
  Receive Date: 20140502
  Receipt Date: 20140502
  Transmission Date: 20141212
  Serious: Yes (Other)
  Sender: FDA-Public Use
  Company Number: CA-014718

PATIENT
  Age: 86 Year
  Sex: Male

DRUGS (3)
  1. DEGARELIX [Suspect]
     Indication: PROSTATE CANCER
     Route: 058
     Dates: start: 20111001, end: 20111001
  2. ZOPICLONE [Concomitant]
  3. CARBOCAL [Concomitant]

REACTIONS (3)
  - Nausea [None]
  - Decreased appetite [None]
  - Vomiting [None]
